FAERS Safety Report 9711481 (Version 2)
Quarter: 2013Q4

REPORT INFORMATION
  Report Type: Spontaneous
  Country: IT (occurrence: IT)
  Receive Date: 20131126
  Receipt Date: 20131204
  Transmission Date: 20140711
  Serious: Yes (Other)
  Sender: FDA-Public Use
  Company Number: IT-RANBAXY-2013RR-75369

PATIENT
  Age: 54 Year
  Sex: Male

DRUGS (1)
  1. AMOXICILLIN [Suspect]
     Indication: SIALOADENITIS
     Dosage: 1 DF COMPLETE
     Route: 048
     Dates: start: 20131029, end: 20131029

REACTIONS (4)
  - Hyperhidrosis [Recovering/Resolving]
  - Hypotension [Recovering/Resolving]
  - Malaise [Recovering/Resolving]
  - Pruritus [Recovering/Resolving]
